FAERS Safety Report 6668841-8 (Version None)
Quarter: 2010Q2

REPORT INFORMATION
  Report Type: 
  Country: None (occurrence: None)
  Receive Date: 20100406
  Receipt Date: 20100326
  Transmission Date: 20101027
  Serious: Yes (Other)
  Sender: FDA-Public Use
  Company Number: US-ROCHE-668182

PATIENT
  Sex: Male
  Weight: 61.2 kg

DRUGS (3)
  1. PEGASYS [Suspect]
     Indication: HEPATITIS C
     Dosage: PRE-FILLED SYRINGE
     Route: 058
     Dates: start: 20091009, end: 20100212
  2. COPEGUS [Suspect]
     Indication: HEPATITIS C
     Dosage: DIVIDED DOSES.
     Route: 048
     Dates: start: 20091009, end: 20100212
  3. LUNESTA [Concomitant]
     Dosage: PRN

REACTIONS (6)
  - EYE DISORDER [None]
  - INFLUENZA LIKE ILLNESS [None]
  - MACULAR DEGENERATION [None]
  - MACULAR OEDEMA [None]
  - RASH MACULAR [None]
  - VISION BLURRED [None]
